FAERS Safety Report 4797561-X (Version None)
Quarter: 2005Q3

REPORT INFORMATION
  Report Type: 
  Country: None (occurrence: None)
  Receive Date: 20050929
  Receipt Date: 20050726
  Transmission Date: 20060218
  Serious: No
  Sender: FDA-Public Use
  Company Number: 05P-163-0305363-00

PATIENT
  Age: 92 Year
  Sex: Female
  Weight: 53.5244 kg

DRUGS (5)
  1. HUMIRA [Suspect]
     Indication: RHEUMATOID ARTHRITIS
     Dosage: 40 MG, 1 IN 2 WK, SUBCUTANEOUS
     Route: 058
     Dates: start: 20031201
  2. DIAZIDE [Concomitant]
  3. CELECOXIB [Concomitant]
  4. METHYLDOPA [Concomitant]
  5. ACETAMINOPHEN [Concomitant]

REACTIONS (3)
  - INJECTION SITE ERYTHEMA [None]
  - INJECTION SITE PRURITUS [None]
  - RHEUMATOID ARTHRITIS [None]
